FAERS Safety Report 14700404 (Version 3)
Quarter: 2018Q2

REPORT INFORMATION
  Report Type: Spontaneous
  Country: US (occurrence: US)
  Receive Date: 20180330
  Receipt Date: 20180609
  Transmission Date: 20180711
  Serious: Yes (Hospitalization)
  Sender: FDA-Public Use
  Company Number: US-JNJFOC-20180324743

PATIENT
  Age: 83 Year
  Sex: Male

DRUGS (17)
  1. ACYCLOVIR. [Concomitant]
     Active Substance: ACYCLOVIR
  2. TYLENOL [Concomitant]
     Active Substance: ACETAMINOPHEN
  3. MULTIVITAMINS [Concomitant]
     Active Substance: VITAMINS
  4. NITROFURANTOIN. [Concomitant]
     Active Substance: NITROFURANTOIN
  5. IMBRUVICA [Suspect]
     Active Substance: IBRUTINIB
     Indication: CHRONIC LYMPHOCYTIC LEUKAEMIA
     Route: 048
     Dates: start: 20170510
  6. ASPIRIN. [Concomitant]
     Active Substance: ASPIRIN
  7. COMPAZINE [Concomitant]
     Active Substance: PROCHLORPERAZINE MALEATE
  8. IMBRUVICA [Suspect]
     Active Substance: IBRUTINIB
     Indication: CHRONIC LYMPHOCYTIC LEUKAEMIA
     Route: 048
     Dates: end: 20180304
  9. IMBRUVICA [Suspect]
     Active Substance: IBRUTINIB
     Indication: CHRONIC LYMPHOCYTIC LEUKAEMIA
     Route: 048
     Dates: start: 20180308
  10. ALLOPURINOL. [Concomitant]
     Active Substance: ALLOPURINOL
  11. ATENOLOL. [Concomitant]
     Active Substance: ATENOLOL
  12. METAMUCIL [Concomitant]
     Active Substance: PLANTAGO SEED
  13. IRON [Concomitant]
     Active Substance: IRON
  14. LEVOTHYROXINE. [Concomitant]
     Active Substance: LEVOTHYROXINE
  15. DIGOXIN. [Concomitant]
     Active Substance: DIGOXIN
  16. MECLIZINE [Concomitant]
     Active Substance: MECLIZINE HYDROCHLORIDE
  17. DIPYRIDAMOLE. [Concomitant]
     Active Substance: DIPYRIDAMOLE

REACTIONS (1)
  - Pneumonia [Recovered/Resolved]

NARRATIVE: CASE EVENT DATE: 20180307
